FAERS Safety Report 6118199-8 (Version None)
Quarter: 2009Q1

REPORT INFORMATION
  Report Type: 
  Country: None (occurrence: None)
  Receive Date: 20090314
  Receipt Date: 20090206
  Transmission Date: 20090719
  Serious: No
  Sender: FDA-Public Use
  Company Number: US-ABBOTT-09P-163-0502941-00

PATIENT
  Sex: Female

DRUGS (3)
  1. HUMIRA [Suspect]
     Indication: PSORIASIS
     Route: 058
     Dates: start: 20080424, end: 20081101
  2. HUMIRA [Suspect]
     Dates: start: 20090204
  3. THYROID MEDICATION [Concomitant]
     Indication: THYROID DISORDER
     Route: 048

REACTIONS (4)
  - CHEST DISCOMFORT [None]
  - PALPITATIONS [None]
  - PERICARDITIS [None]
  - PSORIASIS [None]
